FAERS Safety Report 10671181 (Version 1)
Quarter: 2014Q4

REPORT INFORMATION
  Report Type: Spontaneous
  Country: US (occurrence: None)
  Receive Date: 20141219
  Receipt Date: 20141219
  Transmission Date: 20150529
  Serious: Yes (Hospitalization, Other)
  Sender: FDA-Public Use
  Company Number: 2014VER00344

PATIENT
  Age: 56 Year
  Sex: Female
  Weight: 84.8 kg

DRUGS (4)
  1. DOXYCYCLINE. [Concomitant]
     Active Substance: DOXYCYCLINE
  2. UNSPECIFIED OPIOID PAIN MEDICATION [Concomitant]
  3. RIFAMPIN. [Suspect]
     Active Substance: RIFAMPIN
     Indication: OSTEOMYELITIS
     Route: 048
     Dates: start: 201406, end: 20140806
  4. AMITRIPTYLINE [Concomitant]
     Active Substance: AMITRIPTYLINE

REACTIONS (8)
  - Generalised tonic-clonic seizure [None]
  - Decreased appetite [None]
  - Anxiety [None]
  - Vomiting [None]
  - Off label use [None]
  - Nausea [None]
  - Drug screen false positive [None]
  - Osteomyelitis [None]

NARRATIVE: CASE EVENT DATE: 2014
